FAERS Safety Report 14324445 (Version 1)
Quarter: 2017Q4

REPORT INFORMATION
  Report Type: Spontaneous
  Country: US (occurrence: US)
  Receive Date: 20171226
  Receipt Date: 20171226
  Transmission Date: 20180321
  Serious: No
  Sender: FDA-Public Use
  Company Number: US-009507513-1711USA011906

PATIENT
  Sex: Female

DRUGS (1)
  1. NEXPLANON [Suspect]
     Active Substance: ETONOGESTREL
     Indication: CONTRACEPTION
     Dosage: ONE ROD PER 3 YERAS
     Route: 059
     Dates: start: 20171122

REACTIONS (2)
  - Product quality issue [Unknown]
  - Limb injury [Unknown]

NARRATIVE: CASE EVENT DATE: 20171122
